FAERS Safety Report 18325088 (Version 1)
Quarter: 2020Q3

REPORT INFORMATION
  Report Type: Spontaneous
  Country: US (occurrence: US)
  Receive Date: 20200929
  Receipt Date: 20200929
  Transmission Date: 20201103
  Serious: Yes (Death, Hospitalization, Other)
  Sender: FDA-Public Use
  Company Number: US-LUPIN PHARMACEUTICALS INC.-2020-06528

PATIENT
  Age: 67 Year
  Sex: Male

DRUGS (4)
  1. CLONAZEPAM. [Concomitant]
     Active Substance: CLONAZEPAM
     Indication: PRODUCT USED FOR UNKNOWN INDICATION
     Dosage: UNK
     Route: 016
  2. RANOLAZINE. [Suspect]
     Active Substance: RANOLAZINE
     Indication: PRODUCT USED FOR UNKNOWN INDICATION
     Dosage: UNK (HE HAD INGESTED APPROXIMATELY 30G OF EXTENDED?RELEASE RANOLAZINE SEVERAL HOURS PRIOR IN A SUICI
     Route: 048
  3. ATORVASTATIN [Concomitant]
     Active Substance: ATORVASTATIN
     Indication: PRODUCT USED FOR UNKNOWN INDICATION
     Dosage: UNK
     Route: 065
  4. CLOPIDOGREL [Concomitant]
     Active Substance: CLOPIDOGREL BISULFATE
     Indication: PRODUCT USED FOR UNKNOWN INDICATION
     Dosage: UNK
     Route: 065

REACTIONS (10)
  - Intentional overdose [Fatal]
  - Seizure [Fatal]
  - Ventricular tachycardia [Fatal]
  - Vomiting [Not Recovered/Not Resolved]
  - Atrioventricular block first degree [Fatal]
  - Mental status changes [Not Recovered/Not Resolved]
  - Confusional state [Not Recovered/Not Resolved]
  - Pulseless electrical activity [Fatal]
  - Cardiac arrest [Fatal]
  - Suicide attempt [Fatal]
